FAERS Safety Report 21412290 (Version 2)
Quarter: 2022Q4

REPORT INFORMATION
  Report Type: Spontaneous
  Country: US (occurrence: US)
  Receive Date: 20221005
  Receipt Date: 20221005
  Transmission Date: 20230113
  Serious: No
  Sender: FDA-Public Use
  Company Number: US-Santen Inc-2022-USA-004243

PATIENT
  Age: 71 Year
  Sex: Female

DRUGS (3)
  1. VERKAZIA [Suspect]
     Active Substance: CYCLOSPORINE
     Indication: Dry eye
     Dosage: ONE GTT PER DAY AT NIGHT
     Route: 047
     Dates: start: 20220628
  2. VERKAZIA [Suspect]
     Active Substance: CYCLOSPORINE
     Dosage: ONE DROP OF VERKAZIA IN EACH EYE IN THE LATE MORNING
     Route: 047
     Dates: start: 20220707, end: 20220707
  3. PREDNISOLONE [Concomitant]
     Active Substance: PREDNISOLONE
     Indication: Product used for unknown indication

REACTIONS (9)
  - Foreign body sensation in eyes [Recovered/Resolved]
  - Conjunctival hyperaemia [Recovered/Resolved]
  - Eye pruritus [Recovered/Resolved]
  - Superficial injury of eye [Recovered/Resolved]
  - Lacrimation increased [Recovered/Resolved]
  - Photophobia [Recovered/Resolved]
  - Excessive eye blinking [Recovered/Resolved]
  - Off label use [Unknown]
  - Hypersensitivity [Recovered/Resolved]

NARRATIVE: CASE EVENT DATE: 20220629
